FAERS Safety Report 10017191 (Version 2)
Quarter: 2014Q2

REPORT INFORMATION
  Report Type: Spontaneous
  Country: US (occurrence: US)
  Receive Date: 20140318
  Receipt Date: 20140422
  Transmission Date: 20141212
  Serious: Yes (Other)
  Sender: FDA-Public Use
  Company Number: US-BEH-2014041088

PATIENT
  Sex: Female
  Weight: 58 kg

DRUGS (2)
  1. PRIVIGEN [Suspect]
     Indication: HYPOGAMMAGLOBULINAEMIA
     Dosage: 5 GM VIAL
     Route: 042
  2. PRIVIGEN [Suspect]
     Dosage: 10 GM VIAL
     Route: 042

REACTIONS (3)
  - Renal impairment [Unknown]
  - Peripheral swelling [Unknown]
  - Pain in extremity [Unknown]
